FAERS Safety Report 12732811 (Version 2)
Quarter: 2017Q2

REPORT INFORMATION
  Report Type: Spontaneous
  Country: US (occurrence: US)
  Receive Date: 20160912
  Receipt Date: 20170511
  Transmission Date: 20170830
  Serious: No
  Sender: FDA-Public Use
  Company Number: US-UCBSA-2016022943

PATIENT
  Age: 30 Year
  Sex: Female
  Weight: 64 kg

DRUGS (5)
  1. OXCARBAZEPINE. [Concomitant]
     Active Substance: OXCARBAZEPINE
     Dosage: 300 MG, 2X/DAY (BID)
     Route: 048
     Dates: start: 201509
  2. BRIVIACT [Suspect]
     Active Substance: BRIVARACETAM
     Indication: PRODUCT USED FOR UNKNOWN INDICATION
     Dosage: 100 MG, 2X/DAY (BID)
     Route: 048
     Dates: end: 20160613
  3. KEPPRA XR [Suspect]
     Active Substance: LEVETIRACETAM
     Dosage: LOWER DOSE 2 DAYS
     Route: 048
     Dates: start: 20160615
  4. OXCARBAZEPINE. [Concomitant]
     Active Substance: OXCARBAZEPINE
     Indication: FOCAL DYSCOGNITIVE SEIZURES
     Dosage: 450 MG IN AM AND 650 MG IN PM
     Route: 048
  5. KEPPRA XR [Suspect]
     Active Substance: LEVETIRACETAM
     Indication: FOCAL DYSCOGNITIVE SEIZURES
     Dosage: 750 MG IN AM AND 1500 PM
     Route: 048
     Dates: start: 201605, end: 2016

REACTIONS (7)
  - Neck pain [Recovered/Resolved]
  - Seizure [Recovered/Resolved]
  - Off label use [Unknown]
  - Burning sensation [Recovered/Resolved]
  - Erythema [Recovered/Resolved]
  - Speech disorder [Recovered/Resolved]
  - Paraesthesia [Recovered/Resolved]

NARRATIVE: CASE EVENT DATE: 2016
